FAERS Safety Report 21916442 (Version 1)
Quarter: 2023Q1

REPORT INFORMATION
  Report Type: Spontaneous
  Country: None (occurrence: US)
  Receive Date: 20230126
  Receipt Date: 20230126
  Transmission Date: 20230417
  Serious: No
  Sender: FDA-Public Use
  Company Number: US-Ascent Pharmaceuticals, Inc.-2136929

PATIENT
  Age: 68 Year
  Sex: Female
  Weight: 125 kg

DRUGS (2)
  1. GABAPENTIN [Suspect]
     Active Substance: GABAPENTIN
     Indication: Neuralgia
     Route: 065
     Dates: start: 20221207
  2. IBUPROFEN [Concomitant]
     Active Substance: IBUPROFEN
     Route: 065

REACTIONS (3)
  - Product odour abnormal [Unknown]
  - No adverse event [Unknown]
  - Product container seal issue [Unknown]

NARRATIVE: CASE EVENT DATE: 20221207
